FAERS Safety Report 25064396 (Version 1)
Quarter: 2025Q1

REPORT INFORMATION
  Report Type: Spontaneous
  Country: JP (occurrence: JP)
  Receive Date: 20250311
  Receipt Date: 20250311
  Transmission Date: 20250409
  Serious: Yes (Other)
  Sender: OTSUKA
  Company Number: JP-MMM-Otsuka-TJSPFKNU

PATIENT
  Age: 75 Year
  Sex: Female

DRUGS (4)
  1. TOLVAPTAN [Suspect]
     Active Substance: TOLVAPTAN
     Indication: Right ventricular failure
     Route: 048
  2. TOLVAPTAN [Suspect]
     Active Substance: TOLVAPTAN
     Route: 048
  3. CARPERITIDE [Concomitant]
     Active Substance: CARPERITIDE
     Indication: Right ventricular failure
     Route: 065
  4. MILRINONE [Concomitant]
     Active Substance: MILRINONE
     Indication: Right ventricular failure
     Route: 065

REACTIONS (3)
  - Congestive hepatopathy [Unknown]
  - Drug-induced liver injury [Unknown]
  - Hepatic enzyme increased [Unknown]
